FAERS Safety Report 7402589-7 (Version None)
Quarter: 2011Q2

REPORT INFORMATION
  Report Type: 
  Country: None (occurrence: None)
  Receive Date: 20110408
  Receipt Date: 20110406
  Transmission Date: 20111010
  Serious: Yes (Death)
  Sender: FDA-Public Use
  Company Number: PHHY2010US87525

PATIENT
  Sex: Female

DRUGS (17)
  1. METOPROLOL [Concomitant]
     Dosage: UNK
  2. PAXIL [Concomitant]
     Dosage: UNK
  3. ALBUTEROL [Concomitant]
     Dosage: UNK
  4. COUMADIN [Concomitant]
     Dosage: UNK
  5. PHENERGAN HCL [Concomitant]
     Dosage: UNK
  6. RECLAST [Suspect]
     Dosage: 5 MG
     Route: 042
  7. OXYCODONE [Concomitant]
     Dosage: UNK
  8. PROTONIX [Concomitant]
     Dosage: UNK
  9. IPRATROPIUM BROMIDE [Concomitant]
     Dosage: UNK
  10. CALCIUM [Concomitant]
     Dosage: UNK
  11. LEVOTHYROXINE [Concomitant]
     Dosage: UNK
  12. KLONOPIN [Concomitant]
     Dosage: UNK
  13. PRILOSEC [Concomitant]
     Dosage: UNK
  14. PREDNISONE [Concomitant]
     Dosage: UNK
  15. MAGNESIUM SUPPLEMENTS [Concomitant]
     Dosage: UNK
  16. ALBUTEROL [Concomitant]
     Dosage: UNK
  17. PREMARIN [Concomitant]
     Dosage: UNK

REACTIONS (1)
  - DEATH [None]
